FAERS Safety Report 5902577-3 (Version None)
Quarter: 2008Q3

REPORT INFORMATION
  Report Type: 
  Country: None (occurrence: None)
  Receive Date: 20080924
  Receipt Date: 20080908
  Transmission Date: 20090109
  Serious: Yes (Life-Threatening, Hospitalization)
  Sender: FDA-Public Use
  Company Number: PAR_02343_2008

PATIENT
  Age: 36 Year
  Sex: Female

DRUGS (2)
  1. IBUPROFEN [Suspect]
     Indication: BACK PAIN
     Dosage: (1600 MG DAILY ORAL)
     Route: 048
  2. CODEINE SUL TAB [Suspect]
     Indication: BACK PAIN
     Dosage: (102.4 MG DAILY ORAL)
     Route: 048

REACTIONS (18)
  - ABASIA [None]
  - ACIDOSIS HYPERCHLORAEMIC [None]
  - ASTHENIA [None]
  - BLOOD CHLORIDE DECREASED [None]
  - BLOOD CREATININE INCREASED [None]
  - BLOOD SODIUM DECREASED [None]
  - CYSTITIS ESCHERICHIA [None]
  - DEHYDRATION [None]
  - ELECTROCARDIOGRAM ABNORMAL [None]
  - HYPOAESTHESIA [None]
  - HYPOKALAEMIA [None]
  - HYPOPHOSPHATAEMIA [None]
  - METABOLIC ACIDOSIS [None]
  - MUSCULAR WEAKNESS [None]
  - MYALGIA [None]
  - NEPHROCALCINOSIS [None]
  - POLYURIA [None]
  - RENAL TUBULAR ACIDOSIS [None]
